FAERS Safety Report 6334900-2 (Version None)
Quarter: 2009Q3

REPORT INFORMATION
  Report Type: 
  Country: None (occurrence: None)
  Receive Date: 20090831
  Receipt Date: 20090821
  Transmission Date: 20100115
  Serious: Yes (Congenital Anomaly)
  Sender: FDA-Public Use
  Company Number: US-BRISTOL-MYERS SQUIBB COMPANY-14751911

PATIENT
  Sex: Female
  Weight: 3 kg

DRUGS (1)
  1. ARIPIPRAZOLE [Suspect]
     Route: 064

REACTIONS (2)
  - CEREBRAL VENTRICLE DILATATION [None]
  - HYDROCEPHALUS [None]
